FAERS Safety Report 11154942 (Version 1)
Quarter: 2015Q2

REPORT INFORMATION
  Report Type: Spontaneous
  Country: CO (occurrence: None)
  Receive Date: 20150529
  Receipt Date: 20150529
  Transmission Date: 20150821
  Serious: Yes (Life-Threatening, Other)
  Sender: FDA-Public Use
  Company Number: CO2015GSK070616

PATIENT
  Age: 42 Year
  Sex: Male

DRUGS (2)
  1. KIVEXA [Suspect]
     Active Substance: ABACAVIR SULFATE\LAMIVUDINE
     Indication: HIV INFECTION
     Route: 048
  2. KALETRA (LOPINAVIR, RITONAVIR) [Concomitant]

REACTIONS (2)
  - Thrombosis [None]
  - Myocardial infarction [None]
